FAERS Safety Report 8361987-8 (Version None)
Quarter: 2012Q2

REPORT INFORMATION
  Report Type: 
  Country: None (occurrence: None)
  Receive Date: 20120515
  Receipt Date: 20120507
  Transmission Date: 20120825
  Serious: Yes (Hospitalization, Other)
  Sender: FDA-Public Use
  Company Number: PR-ABBOTT-12P-131-0928753-00

PATIENT
  Sex: Male
  Weight: 85.806 kg

DRUGS (2)
  1. HUMIRA [Suspect]
     Route: 058
     Dates: start: 20111201, end: 20120401
  2. HUMIRA [Suspect]
     Indication: PSORIATIC ARTHROPATHY
     Route: 058
     Dates: start: 20080101, end: 20111201

REACTIONS (3)
  - MYOCARDIAL INFARCTION [None]
  - DIABETES MELLITUS [None]
  - VISUAL ACUITY REDUCED [None]
